FAERS Safety Report 8170399-1 (Version None)
Quarter: 2012Q1

REPORT INFORMATION
  Report Type: 
  Country: None (occurrence: None)
  Receive Date: 20120105
  Receipt Date: 20110923
  Transmission Date: 20120608
  Serious: Yes (Other)
  Sender: FDA-Public Use
  Company Number: JHP201100472

PATIENT
  Age: 25 Year
  Sex: Female

DRUGS (3)
  1. APLISOL [Suspect]
     Indication: TUBERCULOSIS
     Dosage: 0.1 ML, SINGLE, INTRADERMAL
     Route: 023
     Dates: start: 20110624, end: 20110624
  2. APLISOL [Suspect]
     Indication: TUBERCULOSIS
     Dosage: 0.1 ML, SINGLE, INTRADERMAL
     Route: 023
     Dates: start: 20110920, end: 20110920
  3. APLISOL [Suspect]
     Indication: TUBERCULOSIS
     Dosage: 0.1 ML, SINGLE, INTRADERMAL
     Route: 023
     Dates: start: 20110718, end: 20110718

REACTIONS (3)
  - SIMILAR REACTION ON PREVIOUS EXPOSURE TO DRUG [None]
  - HYPERSENSITIVITY [None]
  - INJECTION SITE ERYTHEMA [None]
